FAERS Safety Report 10801366 (Version 13)
Quarter: 2018Q1

REPORT INFORMATION
  Report Type: Report from Study
  Country: CA (occurrence: CA)
  Receive Date: 20150217
  Receipt Date: 20180208
  Transmission Date: 20180508
  Serious: Yes (Other)
  Sender: FDA-Public Use
  Company Number: CA-ROCHE-1536217

PATIENT
  Age: 51 Year
  Sex: Female

DRUGS (10)
  1. BUPROPION. [Concomitant]
     Active Substance: BUPROPION
  2. RITUXAN [Suspect]
     Active Substance: RITUXIMAB
     Indication: POLYMYOSITIS
     Dosage: MOST RECENT DOSE: ON 22/MAY/2015, AT 500 MG EVERY 6 MONTHS
     Route: 042
     Dates: start: 20140813
  3. ATARAX [Concomitant]
     Active Substance: HYDROXYZINE HYDROCHLORIDE
     Route: 065
  4. CORTISONE [Concomitant]
     Active Substance: CORTISONE\HYDROCORTISONE
  5. SYMBICORT [Concomitant]
     Active Substance: BUDESONIDE\FORMOTEROL FUMARATE DIHYDRATE
  6. SYNTHROID [Concomitant]
     Active Substance: LEVOTHYROXINE SODIUM
  7. PREDNISONE. [Suspect]
     Active Substance: PREDNISONE
     Indication: PRODUCT USED FOR UNKNOWN INDICATION
     Route: 065
  8. SOLU-MEDROL [Concomitant]
     Active Substance: METHYLPREDNISOLONE SODIUM SUCCINATE
     Indication: PREMEDICATION
     Route: 042
     Dates: start: 20150522
  9. RITUXAN [Suspect]
     Active Substance: RITUXIMAB
     Indication: DERMATOMYOSITIS
  10. TYLENOL [Concomitant]
     Active Substance: ACETAMINOPHEN
     Indication: PREMEDICATION
     Route: 048
     Dates: start: 20150522

REACTIONS (15)
  - Chest injury [Unknown]
  - Bronchitis [Recovering/Resolving]
  - Thymoma [Unknown]
  - Intentional product use issue [Unknown]
  - Ill-defined disorder [Unknown]
  - Menopause [Not Recovered/Not Resolved]
  - Depression [Unknown]
  - Arthralgia [Not Recovered/Not Resolved]
  - Diarrhoea [Recovered/Resolved]
  - Vomiting [Recovered/Resolved]
  - Off label use [Unknown]
  - Diplopia [Not Recovered/Not Resolved]
  - Viral infection [Unknown]
  - Myasthenia gravis [Unknown]
  - Pain [Not Recovered/Not Resolved]

NARRATIVE: CASE EVENT DATE: 2015
